FAERS Safety Report 8992934 (Version 2)
Quarter: 2013Q1

REPORT INFORMATION
  Report Type: Report from Study
  Country: US (occurrence: US)
  Receive Date: 20130102
  Receipt Date: 20130222
  Transmission Date: 20140127
  Serious: Yes (Other)
  Sender: FDA-Public Use
  Company Number: US-JNJFOC-20121211421

PATIENT
  Sex: Female
  Weight: 81.65 kg

DRUGS (6)
  1. REMICADE [Suspect]
     Indication: RHEUMATOID ARTHRITIS
     Dosage: APPROXIMATELY PATIENT RECEIVED 7 INFLIXIMAB INFUSIONS.
     Route: 042
     Dates: end: 20111019
  2. REMICADE [Suspect]
     Indication: RHEUMATOID ARTHRITIS
     Route: 042
     Dates: start: 20110126
  3. METHOTREXATE [Suspect]
     Indication: RHEUMATOID ARTHRITIS
     Route: 048
     Dates: start: 20100726
  4. METHOTREXATE [Suspect]
     Indication: RHEUMATOID ARTHRITIS
     Route: 058
     Dates: end: 201111
  5. PREDNISONE [Suspect]
     Indication: RHEUMATOID ARTHRITIS
     Dosage: 5 TO 15 MG
     Route: 048
     Dates: start: 20100726, end: 201111
  6. FOLIC ACID [Concomitant]
     Dosage: 1 TO 2 MG
     Route: 048
     Dates: start: 20100726, end: 201111

REACTIONS (1)
  - Breast cancer recurrent [Recovering/Resolving]
